FAERS Safety Report 9165725 (Version 1)
Quarter: 2013Q1

REPORT INFORMATION
  Report Type: Spontaneous
  Country: US (occurrence: None)
  Receive Date: 20130314
  Receipt Date: 20130314
  Transmission Date: 20140127
  Serious: Yes (Life-Threatening, Hospitalization, Other)
  Sender: FDA-Public Use
  Company Number: None

PATIENT
  Age: 8 Year
  Sex: Female
  Weight: 39.92 kg

DRUGS (1)
  1. TYLENOL W/CODEINE [Suspect]
     Indication: POSTOPERATIVE CARE
     Dosage: BY WEIGHT, Q3-4HRS, PO
     Route: 048
     Dates: start: 20130211, end: 20130212

REACTIONS (4)
  - Respiratory depression [None]
  - Pneumothorax [None]
  - Somnolence [None]
  - Overdose [None]
